FAERS Safety Report 9911515 (Version 3)
Quarter: 2014Q2

REPORT INFORMATION
  Report Type: Report from Study
  Country: DE (occurrence: DE)
  Receive Date: 20140219
  Receipt Date: 20140616
  Transmission Date: 20141212
  Serious: No
  Sender: FDA-Public Use
  Company Number: PHHY2014DE019839

PATIENT
  Sex: Female
  Weight: 76 kg

DRUGS (6)
  1. AFINITOR [Suspect]
     Indication: BREAST CANCER
     Dosage: 10 MG, DAILY
     Route: 048
     Dates: start: 20130517, end: 20130611
  2. AFINITOR [Suspect]
     Dosage: 5 MG, DAILY
     Route: 048
     Dates: start: 20130612, end: 20130709
  3. AFINITOR [Suspect]
     Dosage: 5 MG, DAILY
     Route: 048
     Dates: start: 20130808, end: 20140129
  4. AFINITOR [Suspect]
     Dosage: 10 MG, DAILY
     Route: 048
     Dates: start: 20140130, end: 20140402
  5. EXEMESTANE [Suspect]
     Dosage: 25 MG, DALIY
     Route: 048
     Dates: start: 20130517, end: 20130709
  6. EXEMESTANE [Suspect]
     Dosage: 25 MG, DAILY
     Route: 048
     Dates: start: 20130808, end: 20140402

REACTIONS (1)
  - Dry throat [Recovered/Resolved]
